FAERS Safety Report 5219085-8 (Version None)
Quarter: 2007Q1

REPORT INFORMATION
  Report Type: 
  Country: None (occurrence: None)
  Receive Date: 20070125
  Receipt Date: 20070115
  Transmission Date: 20070707
  Serious: Yes (Life-Threatening)
  Sender: FDA-Public Use
  Company Number: HQWYE384115JAN07

PATIENT
  Sex: Female
  Weight: 57 kg

DRUGS (12)
  1. ENBREL [Suspect]
     Indication: RHEUMATOID ARTHRITIS
     Route: 058
     Dates: start: 20060627, end: 20060919
  2. ZANTAC [Concomitant]
  3. ALLORINE [Concomitant]
  4. TOWAMIN [Concomitant]
  5. PREDNISOLONE [Concomitant]
     Indication: RHEUMATOID ARTHRITIS
  6. VOLTAREN [Concomitant]
     Indication: RHEUMATOID ARTHRITIS
  7. LASIX [Concomitant]
  8. ALOSENN [Concomitant]
  9. TRYTHMEN [Concomitant]
  10. SORASILOL [Concomitant]
  11. BLOPRESS [Concomitant]
  12. FUROSEMIDE [Concomitant]

REACTIONS (2)
  - CONDITION AGGRAVATED [None]
  - RENAL FAILURE [None]
